FAERS Safety Report 17659493 (Version 1)
Quarter: 2020Q2

REPORT INFORMATION
  Report Type: Spontaneous
  Country: US (occurrence: US)
  Receive Date: 20200410
  Receipt Date: 20200410
  Transmission Date: 20200713
  Serious: No
  Sender: FDA-Public Use
  Company Number: None

PATIENT
  Age: 38 Year
  Sex: Female

DRUGS (1)
  1. STELARA [Suspect]
     Active Substance: USTEKINUMAB
     Indication: GUTTATE PSORIASIS
     Dosage: ?          OTHER FREQUENCY:EVERY 12 WEEKS;?
     Route: 058
     Dates: start: 20200311

REACTIONS (4)
  - Wrong technique in product usage process [None]
  - Incorrect dose administered [None]
  - Device use error [None]
  - Inappropriate schedule of product administration [None]

NARRATIVE: CASE EVENT DATE: 20200409
